FAERS Safety Report 14532612 (Version 1)
Quarter: 2018Q1

REPORT INFORMATION
  Report Type: Spontaneous
  Country: US (occurrence: US)
  Receive Date: 20180213
  Receipt Date: 20180213
  Transmission Date: 20180509
  Serious: Yes (Hospitalization)
  Sender: FDA-Public Use
  Company Number: None

PATIENT
  Sex: Female

DRUGS (8)
  1. FUROSEMIDE. [Concomitant]
     Active Substance: FUROSEMIDE
  2. METOPROLOL. [Concomitant]
     Active Substance: METOPROLOL
  3. TACROLIMUS 1MG [Suspect]
     Active Substance: TACROLIMUS
     Indication: RENAL TRANSPLANT
     Dosage: 5 MG/4 MG   QAM/QPM
     Route: 048
     Dates: start: 20160331
  4. APAP [Concomitant]
     Active Substance: ACETAMINOPHEN
  5. PREDNISONE. [Concomitant]
     Active Substance: PREDNISONE
  6. MYCOPHENOLIC [Concomitant]
     Active Substance: MYCOPHENOLIC ACID
  7. ALPRAZOLAM. [Concomitant]
     Active Substance: ALPRAZOLAM
  8. CLONIDINE. [Concomitant]
     Active Substance: CLONIDINE

REACTIONS (1)
  - Hospitalisation [None]
